FAERS Safety Report 6903666-7 (Version None)
Quarter: 2010Q3

REPORT INFORMATION
  Report Type: 
  Country: None (occurrence: None)
  Receive Date: 20100803
  Receipt Date: 20081114
  Transmission Date: 20110219
  Serious: No
  Sender: FDA-Public Use
  Company Number: US-PFIZER INC-2008068812

PATIENT
  Sex: Male
  Weight: 72.57 kg

DRUGS (7)
  1. LYRICA [Suspect]
     Indication: CONVULSION
     Dates: start: 20080215, end: 20080419
  2. LYRICA [Suspect]
     Indication: NEURALGIA
  3. LYRICA [Suspect]
     Indication: NEUROPATHY PERIPHERAL
  4. NEURONTIN [Suspect]
     Indication: CONVULSION
     Dates: start: 20080605, end: 20080706
  5. NEURONTIN [Suspect]
     Indication: NEURALGIA
  6. NEURONTIN [Suspect]
     Indication: NEUROPATHY PERIPHERAL
  7. GABAPENTIN [Suspect]

REACTIONS (6)
  - DRUG INEFFECTIVE [None]
  - JOINT SWELLING [None]
  - OEDEMA PERIPHERAL [None]
  - PERIODONTAL DISEASE [None]
  - TONGUE DISCOLOURATION [None]
  - TOOTH DISCOLOURATION [None]
